FAERS Safety Report 5788792-0 (Version None)
Quarter: 2008Q2

REPORT INFORMATION
  Report Type: 
  Country: None (occurrence: None)
  Receive Date: 20080624
  Receipt Date: 20071229
  Transmission Date: 20081010
  Serious: Yes (Other)
  Sender: FDA-Public Use
  Company Number: 200810009US

PATIENT
  Age: 79 Year
  Sex: Male
  Weight: 64.55 kg

DRUGS (5)
  1. LANTUS [Suspect]
     Indication: TYPE 2 DIABETES MELLITUS
     Dosage: 5 - 10 U QD
     Dates: start: 20071218
  2. AMLODIPINE (NORVASC /00972401/) [Concomitant]
  3. FLUDROCORTISONE ACETATE (FLORINEF) [Concomitant]
  4. COUMADIN [Concomitant]
  5. GLYCERYL TRINITRATE (NITROGLYCERINE) [Concomitant]

REACTIONS (3)
  - HYPOGLYCAEMIA [None]
  - HYPOKINESIA [None]
  - SPEECH DISORDER [None]
